FAERS Safety Report 7732616-9 (Version None)
Quarter: 2011Q3

REPORT INFORMATION
  Report Type: 
  Country: None (occurrence: None)
  Receive Date: 20110906
  Receipt Date: 20110825
  Transmission Date: 20111222
  Serious: Yes (Hospitalization)
  Sender: FDA-Public Use
  Company Number: US-BAYER-2011-023228

PATIENT
  Age: 32 Year
  Sex: Female
  Weight: 109 kg

DRUGS (7)
  1. NAPROSYN [Concomitant]
     Dosage: 550 MG, UNK
     Dates: start: 20060713, end: 20060908
  2. CLINDAMYCIN HCL [Concomitant]
     Dosage: UNK
     Dates: start: 20060901
  3. SULFAMETHOXAZOLE [Concomitant]
     Dosage: UNK
     Dates: start: 20060901
  4. YASMIN [Suspect]
     Indication: CONTRACEPTION
     Dosage: UNK
     Route: 048
     Dates: start: 20051013, end: 20060925
  5. ADIPEX [Concomitant]
     Indication: WEIGHT DECREASED
     Dosage: UNK
     Dates: start: 20060801, end: 20060901
  6. ALBUTEROL SULFATE AUTOHALER [Concomitant]
     Dosage: UNK
     Dates: start: 20060908
  7. YASMIN [Suspect]
     Indication: MENSTRUATION IRREGULAR

REACTIONS (6)
  - DEEP VEIN THROMBOSIS [None]
  - PAIN IN EXTREMITY [None]
  - DYSPNOEA [None]
  - PULMONARY EMBOLISM [None]
  - PULMONARY INFARCTION [None]
  - OEDEMA PERIPHERAL [None]
